FAERS Safety Report 15837290 (Version 6)
Quarter: 2020Q4

REPORT INFORMATION
  Report Type: Spontaneous
  Country: HN (occurrence: HN)
  Receive Date: 20190117
  Receipt Date: 20201224
  Transmission Date: 20210113
  Serious: Yes (Death, Hospitalization, Other)
  Sender: FDA-Public Use
  Company Number: PHHY2019HN006465

PATIENT
  Age: 51 Year
  Sex: Female
  Weight: 63.95 kg

DRUGS (4)
  1. GLIVEC [Suspect]
     Active Substance: IMATINIB MESYLATE
     Dosage: 1 DF, QD
     Route: 065
     Dates: start: 20190108
  2. GLIVEC [Suspect]
     Active Substance: IMATINIB MESYLATE
     Indication: CHRONIC MYELOID LEUKAEMIA
     Dosage: 400 MG, QD
     Route: 065
     Dates: start: 20180730
  3. ENALAPRIL [Concomitant]
     Active Substance: ENALAPRIL
     Indication: HYPERTENSION
     Route: 065
  4. GLIVEC [Suspect]
     Active Substance: IMATINIB MESYLATE
     Dosage: UNK
     Route: 065
     Dates: start: 20190109

REACTIONS (11)
  - Septic shock [Fatal]
  - Deep vein thrombosis [Unknown]
  - Malignant neoplasm progression [Fatal]
  - Chronic myeloid leukaemia [Fatal]
  - Salmonellosis [Unknown]
  - Proteus infection [Unknown]
  - Brucellosis [Unknown]
  - Platelet count decreased [Unknown]
  - Cardiac failure [Fatal]
  - Haemoglobin decreased [Unknown]
  - Cytogenetic analysis abnormal [Unknown]

NARRATIVE: CASE EVENT DATE: 201811
